FAERS Safety Report 9831189 (Version 1)
Quarter: 2014Q1

REPORT INFORMATION
  Report Type: Spontaneous
  Country: DE (occurrence: DE)
  Receive Date: 20140121
  Receipt Date: 20140121
  Transmission Date: 20141002
  Serious: Yes (Other)
  Sender: FDA-Public Use
  Company Number: DE-ROCHE-1335387

PATIENT
  Age: 82 Year
  Sex: Female

DRUGS (3)
  1. RITUXIMAB [Suspect]
     Indication: ACQUIRED HAEMOPHILIA
     Route: 065
  2. CYCLOPHOSPHAMIDE [Suspect]
     Indication: ACQUIRED HAEMOPHILIA
     Route: 042
  3. CYCLOPHOSPHAMIDE [Suspect]
     Route: 042

REACTIONS (1)
  - Febrile neutropenia [Recovered/Resolved]
